FAERS Safety Report 5568038-9 (Version None)
Quarter: 2007Q4

REPORT INFORMATION
  Report Type: 
  Country: None (occurrence: None)
  Receive Date: 20071220
  Receipt Date: 20071214
  Transmission Date: 20080405
  Serious: Yes (Other)
  Sender: FDA-Public Use
  Company Number: DE-JNJFOC-20071201687

PATIENT
  Sex: Male

DRUGS (8)
  1. RISPERDAL CONSTA [Suspect]
     Route: 030
  2. RISPERDAL CONSTA [Suspect]
     Route: 030
  3. RISPERDAL CONSTA [Suspect]
     Indication: SCHIZOPHRENIA
     Route: 030
  4. CIPRALEX [Concomitant]
     Route: 048
  5. ALLOPURINOL [Concomitant]
     Route: 048
  6. FURORESE [Concomitant]
     Route: 048
  7. ASPIRIN [Concomitant]
     Route: 048
  8. METFORMIN HCL [Concomitant]
     Route: 048

REACTIONS (5)
  - GAMMA-GLUTAMYLTRANSFERASE INCREASED [None]
  - HYPERTRIGLYCERIDAEMIA [None]
  - LEUKOCYTOSIS [None]
  - THROMBOCYTHAEMIA [None]
  - TYPE 2 DIABETES MELLITUS [None]
